FAERS Safety Report 10463759 (Version 2)
Quarter: 2014Q4

REPORT INFORMATION
  Report Type: Spontaneous
  Country: JP (occurrence: None)
  Receive Date: 20140917
  Receipt Date: 20141014
  Transmission Date: 20150528
  Serious: Yes (Death)
  Sender: FDA-Public Use
  Company Number: JP-017069

PATIENT
  Age: 74 Year
  Sex: Male
  Weight: 62 kg

DRUGS (5)
  1. DOCETAXEL. [Suspect]
     Active Substance: DOCETAXEL
     Indication: PRODUCT USED FOR UNKNOWN INDICATION
     Dates: start: 20131009, end: 20140120
  2. DECADRON [Concomitant]
     Active Substance: DEXAMETHASONE
  3. DEXAMETHASONE (DEXAMETHASONE) [Suspect]
     Active Substance: DEXAMETHASONE
     Indication: PRODUCT USED FOR UNKNOWN INDICATION
  4. RANMARK [Concomitant]
     Active Substance: DENOSUMAB
  5. DEGARELIX (GONAX) (240 MG, 80MG) [Suspect]
     Active Substance: DEGARELIX
     Indication: PROSTATE CANCER
     Dosage: 240 MG, TOTAL SUBCUTANEOUS
     Route: 058
     Dates: start: 20130802, end: 20130802

REACTIONS (2)
  - Pneumonia [None]
  - Prostatic specific antigen increased [None]

NARRATIVE: CASE EVENT DATE: 20140203
